FAERS Safety Report 8163076-4 (Version None)
Quarter: 2012Q1

REPORT INFORMATION
  Report Type: 
  Country: None (occurrence: None)
  Receive Date: 20120224
  Receipt Date: 20120221
  Transmission Date: 20120608
  Serious: Yes (Life-Threatening, Disabling)
  Sender: FDA-Public Use
  Company Number: US-GLAXOSMITHKLINE-A0966730A

PATIENT
  Age: 40 Year
  Sex: Female

DRUGS (6)
  1. COLACE [Concomitant]
  2. AMBIEN CR [Concomitant]
  3. LAMICTAL [Suspect]
     Indication: MAJOR DEPRESSION
     Dosage: 200MG AT NIGHT
     Route: 048
     Dates: start: 20110913
  4. NORTRIPTYLINE HCL [Concomitant]
  5. ZOLOFT [Concomitant]
  6. KLONOPIN [Concomitant]

REACTIONS (2)
  - ANTINUCLEAR ANTIBODY POSITIVE [None]
  - SYSTEMIC LUPUS ERYTHEMATOSUS [None]
